FAERS Safety Report 14871501 (Version 2)
Quarter: 2018Q3

REPORT INFORMATION
  Report Type: Spontaneous
  Country: US (occurrence: US)
  Receive Date: 20180509
  Receipt Date: 20180728
  Transmission Date: 20181010
  Serious: Yes (Other)
  Sender: FDA-Public Use
  Company Number: US-SA-2018SA125701

PATIENT
  Age: 70 Year
  Sex: Male

DRUGS (3)
  1. LANTUS SOLOSTAR [Suspect]
     Active Substance: INSULIN GLARGINE
     Dosage: 2 DF,QD
     Route: 051
     Dates: start: 201804
  2. LANTUS SOLOSTAR [Suspect]
     Active Substance: INSULIN GLARGINE
     Dosage: UNK UNK,BID
     Route: 051
  3. LANTUS SOLOSTAR [Suspect]
     Active Substance: INSULIN GLARGINE
     Indication: TYPE 1 DIABETES MELLITUS
     Dosage: 3 DF,QD
     Route: 051
     Dates: start: 2008

REACTIONS (6)
  - Injection site bruising [Unknown]
  - Atrial fibrillation [Unknown]
  - Drug ineffective [Unknown]
  - Product use issue [Unknown]
  - Blood glucose fluctuation [Recovered/Resolved]
  - Visual impairment [Unknown]
